FAERS Safety Report 7118607-X (Version None)
Quarter: 2010Q4

REPORT INFORMATION
  Report Type: 
  Country: None (occurrence: None)
  Receive Date: 20101123
  Receipt Date: 20101110
  Transmission Date: 20110411
  Serious: Yes (Life-Threatening, Hospitalization)
  Sender: FDA-Public Use
  Company Number: US-ELI_LILLY_AND_COMPANY-US201011003200

PATIENT
  Age: 69 Year
  Sex: Female

DRUGS (14)
  1. ZYPREXA [Suspect]
     Dosage: 2.5 MG, 2/D
     Dates: start: 20100901, end: 20101031
  2. ZYPREXA [Suspect]
     Dosage: 2.5 MG, DAILY (1/D)
     Dates: start: 20101031, end: 20101110
  3. NOVOLOG [Concomitant]
     Dosage: 30 U, 2/D
  4. DIGOXIN [Concomitant]
  5. DILTIAZEM [Concomitant]
  6. COLACE [Concomitant]
  7. PEPCID [Concomitant]
  8. VALPROIC ACID [Concomitant]
  9. METOPROLOL [Concomitant]
  10. COREG [Concomitant]
  11. SENOKOT [Concomitant]
  12. SIMVASTATIN [Concomitant]
  13. LASIX [Concomitant]
  14. POTASSIUM CHLORIDE [Concomitant]

REACTIONS (4)
  - HYPERGLYCAEMIA [None]
  - PNEUMONIA [None]
  - PYREXIA [None]
  - RESPIRATORY ARREST [None]
